FAERS Safety Report 18846163 (Version 4)
Quarter: 2022Q2

REPORT INFORMATION
  Report Type: Spontaneous
  Country: US (occurrence: US)
  Receive Date: 20210204
  Receipt Date: 20220504
  Transmission Date: 20220720
  Serious: No
  Sender: FDA-Public Use
  Company Number: US-PFIZER INC-2018262175

PATIENT
  Age: 82 Year
  Sex: Female
  Weight: 77.11 kg

DRUGS (6)
  1. LYRICA [Suspect]
     Active Substance: PREGABALIN
     Indication: Fibromyalgia
     Dosage: 75 MG
  2. LYRICA [Suspect]
     Active Substance: PREGABALIN
     Indication: Pain
     Dosage: 150 MG, 2X/DAY
     Route: 048
  3. LYRICA [Suspect]
     Active Substance: PREGABALIN
     Dosage: 450 MG, DAILY (CAPSULE IN THE AM AND 2 AT BEDTIME)
     Route: 048
  4. LYRICA [Suspect]
     Active Substance: PREGABALIN
     Dosage: 600 MG, DAILY (2CAPSULES 150MG IN MORNING AND 2 CAPSULES AT NIGHT/150MG 2 MORNING AND 2 AT NIGHT)
  5. LYRICA [Suspect]
     Active Substance: PREGABALIN
     Dosage: 450 MG, DAILY (1 CAPSULE BY MOUTH EVERY MORNING AND 2 CAPSULE EVERY NIGHT)
     Route: 048
  6. LYRICA [Suspect]
     Active Substance: PREGABALIN
     Dosage: 300 MG, 2X/DAY
     Route: 048

REACTIONS (6)
  - Off label use [Unknown]
  - Memory impairment [Unknown]
  - Fibromyalgia [Not Recovered/Not Resolved]
  - Condition aggravated [Unknown]
  - Chills [Unknown]
  - Feeling abnormal [Unknown]

NARRATIVE: CASE EVENT DATE: 20210812
